FAERS Safety Report 18426645 (Version 1)
Quarter: 2020Q4

REPORT INFORMATION
  Report Type: Spontaneous
  Country: US (occurrence: US)
  Receive Date: 20201026
  Receipt Date: 20201026
  Transmission Date: 20210114
  Serious: No
  Sender: FDA-Public Use
  Company Number: US-GALDERMA-US2020030221

PATIENT
  Sex: Female

DRUGS (14)
  1. PROACTIV MD DAILY OIL CONTROL SPF 30 [Suspect]
     Active Substance: AVOBENZONE\OCTISALATE\OCTOCRYLENE
     Indication: ACNE
     Route: 061
     Dates: start: 20200219, end: 202006
  2. PROACTIV GENTLE FORMULA CLARIFYING DAY LOTION [Concomitant]
     Indication: ACNE
     Route: 061
     Dates: start: 20200219, end: 202006
  3. PROACTIV MD ADAPALENE ACNE TREATMENT [Suspect]
     Active Substance: ADAPALENE
     Indication: SEBORRHOEA
  4. PROACTIV GENTLE FORMULA CLARIFYING CLEANSER [Concomitant]
     Active Substance: SALICYLIC ACID
     Indication: SEBORRHOEA
  5. PROACTIV GENTLE FORMULA CLARIFYING NIGHT LOTION [Concomitant]
     Indication: SEBORRHOEA
  6. PROACTIV GENTLE FORMULA CLARIFYING DAY LOTION [Concomitant]
     Indication: SEBORRHOEA
  7. PROACTIV GENTLE FORMULA CLARIFYING TONER [Concomitant]
     Indication: SEBORRHOEA
  8. PROACTIV MD ADAPALENE ACNE TREATMENT [Suspect]
     Active Substance: ADAPALENE
     Indication: ACNE
     Dosage: 0.1%
     Route: 061
     Dates: start: 20200219, end: 202006
  9. PROACTIV MD DAILY OIL CONTROL SPF 30 [Suspect]
     Active Substance: AVOBENZONE\OCTISALATE\OCTOCRYLENE
     Indication: SEBORRHOEA
  10. PROACTIV MD DEEP CLEANSING FACE WASH [Concomitant]
     Active Substance: COSMETICS
     Indication: SEBORRHOEA
  11. PROACTIV GENTLE FORMULA CLARIFYING NIGHT LOTION [Concomitant]
     Indication: ACNE
     Route: 061
     Dates: start: 20200219, end: 202006
  12. PROACTIV GENTLE FORMULA CLARIFYING TONER [Concomitant]
     Indication: ACNE
     Route: 061
     Dates: start: 20200219, end: 202006
  13. PROACTIV MD DEEP CLEANSING FACE WASH [Concomitant]
     Active Substance: COSMETICS
     Indication: ACNE
     Route: 061
     Dates: start: 20200219, end: 202006
  14. PROACTIV GENTLE FORMULA CLARIFYING CLEANSER [Concomitant]
     Active Substance: SALICYLIC ACID
     Indication: ACNE
     Route: 061
     Dates: start: 20200219, end: 202006

REACTIONS (5)
  - Overdose [Recovered/Resolved]
  - Skin irritation [Recovered/Resolved]
  - Dry skin [Recovered/Resolved]
  - Inappropriate schedule of product administration [Recovered/Resolved]
  - Skin exfoliation [Recovered/Resolved]

NARRATIVE: CASE EVENT DATE: 20200219
